FAERS Safety Report 6828362-6 (Version None)
Quarter: 2010Q3

REPORT INFORMATION
  Report Type: 
  Country: None (occurrence: None)
  Receive Date: 20100708
  Receipt Date: 20100708
  Transmission Date: 20110219
  Serious: Yes (Hospitalization)
  Sender: FDA-Public Use
  Company Number: None

PATIENT
  Age: 72 Year
  Sex: Female

DRUGS (4)
  1. ALIMTA [Suspect]
     Dosage: 800 MG EVERY 28 DAYS IV
     Route: 042
     Dates: start: 20091109, end: 20100622
  2. CARBOLPATIN [Concomitant]
  3. FOLIC ACID [Concomitant]
  4. VITAMIN B-12 [Concomitant]

REACTIONS (2)
  - CELLULITIS [None]
  - PANCYTOPENIA [None]
